FAERS Safety Report 10395229 (Version 3)
Quarter: 2014Q4

REPORT INFORMATION
  Report Type: Spontaneous
  Country: FR (occurrence: FR)
  Receive Date: 20140820
  Receipt Date: 20141022
  Transmission Date: 20150528
  Serious: Yes (Death, Other)
  Sender: FDA-Public Use
  Company Number: FR-JNJFOC-20140803860

PATIENT

DRUGS (5)
  1. RITUXIMAB [Suspect]
     Active Substance: RITUXIMAB
     Indication: DIFFUSE LARGE B-CELL LYMPHOMA
     Route: 065
  2. ONCOVIN [Suspect]
     Active Substance: VINCRISTINE SULFATE
     Indication: DIFFUSE LARGE B-CELL LYMPHOMA
     Route: 065
  3. DOXORUBICIN HYDROCHLORIDE. [Suspect]
     Active Substance: DOXORUBICIN HYDROCHLORIDE
     Indication: DIFFUSE LARGE B-CELL LYMPHOMA
     Route: 042
  4. CYCLOPHOSPHAMIDE. [Suspect]
     Active Substance: CYCLOPHOSPHAMIDE
     Indication: DIFFUSE LARGE B-CELL LYMPHOMA
     Route: 065
  5. PREDNISONE. [Suspect]
     Active Substance: PREDNISONE
     Indication: DIFFUSE LARGE B-CELL LYMPHOMA
     Route: 065

REACTIONS (1)
  - Toxicity to various agents [Fatal]
